FAERS Safety Report 23259795 (Version 1)
Quarter: 2023Q4

REPORT INFORMATION
  Report Type: Spontaneous
  Country: US (occurrence: US)
  Receive Date: 20231204
  Receipt Date: 20231204
  Transmission Date: 20240109
  Serious: Yes (Hospitalization)
  Sender: FDA-Public Use
  Company Number: US-ALKERMES INC.-ALK-2023-004515

PATIENT

DRUGS (1)
  1. ARISTADA [Suspect]
     Active Substance: ARIPIPRAZOLE LAUROXIL
     Indication: Bipolar disorder
     Dosage: UNK MILLIGRAM
     Route: 030

REACTIONS (5)
  - Mania [Unknown]
  - Akathisia [Unknown]
  - Personality change [Unknown]
  - Impaired quality of life [Unknown]
  - Off label use [Not Recovered/Not Resolved]
